FAERS Safety Report 11231536 (Version 2)
Quarter: 2015Q3

REPORT INFORMATION
  Report Type: Spontaneous
  Country: FR (occurrence: FR)
  Receive Date: 20150701
  Receipt Date: 20150708
  Transmission Date: 20151125
  Serious: Yes (Other)
  Sender: FDA-Public Use
  Company Number: FR-SA-2015SA090882

PATIENT
  Age: 63 Year
  Sex: Male
  Weight: 95 kg

DRUGS (11)
  1. AVODART [Concomitant]
     Active Substance: DUTASTERIDE
     Route: 048
  2. ELOXATIN [Suspect]
     Active Substance: OXALIPLATIN
     Indication: HEPATIC CANCER
     Dosage: FORM: LYOPHILIZATE FOR INFUSION
     Route: 042
     Dates: start: 20150422
  3. GEMCITABINE [Suspect]
     Active Substance: GEMCITABINE\GEMCITABINE HYDROCHLORIDE
     Indication: BONE CANCER
     Route: 042
     Dates: start: 20150422
  4. ELOXATIN [Suspect]
     Active Substance: OXALIPLATIN
     Indication: BONE CANCER
     Dosage: FORM: LYOPHILIZATE FOR INFUSION
     Route: 042
     Dates: start: 20150422
  5. GEMCITABINE [Suspect]
     Active Substance: GEMCITABINE\GEMCITABINE HYDROCHLORIDE
     Indication: HEPATIC CANCER
     Route: 042
     Dates: start: 20150422
  6. UROREC [Concomitant]
     Active Substance: SILODOSIN
     Route: 048
  7. ONDANSETRON [Suspect]
     Active Substance: ONDANSETRON
     Dosage: FORM: SOLUTION FOR INJECTION IN PRE-FILLED SYRINGE
     Route: 042
     Dates: start: 20150422
  8. NEFOPAM [Concomitant]
     Active Substance: NEFOPAM
     Dosage: 20 MG/2 ML ORAL SUSPENSION
     Route: 048
  9. GEL-LARMES [Concomitant]
     Route: 047
  10. EMEND [Suspect]
     Active Substance: APREPITANT
     Dosage: DAY2, DAY 3: 80 MG IV
     Route: 048
     Dates: start: 20150422
  11. METHYLPREDNISOLONE. [Suspect]
     Active Substance: METHYLPREDNISOLONE
     Route: 042
     Dates: start: 20150422

REACTIONS (5)
  - Drug reaction with eosinophilia and systemic symptoms [Recovering/Resolving]
  - General physical health deterioration [Recovering/Resolving]
  - Dermatitis exfoliative [Recovering/Resolving]
  - Pruritus [Recovering/Resolving]
  - Eosinophilia [Recovering/Resolving]

NARRATIVE: CASE EVENT DATE: 201505
